FAERS Safety Report 9808967 (Version 1)
Quarter: 2014Q1

REPORT INFORMATION
  Report Type: Spontaneous
  Country: US (occurrence: US)
  Receive Date: 20140110
  Receipt Date: 20140110
  Transmission Date: 20141002
  Serious: Yes (Other)
  Sender: FDA-Public Use
  Company Number: US-GE HEALTHCARE MEDICAL DIAGNOSTICS-OSCN-PR-1312S-0142

PATIENT
  Sex: Male

DRUGS (9)
  1. OMNISCAN [Suspect]
     Indication: TRANSPLANT EVALUATION
     Route: 042
     Dates: start: 20011011, end: 20011011
  2. OMNISCAN [Suspect]
     Indication: PRODUCT USED FOR UNKNOWN INDICATION
     Route: 042
     Dates: start: 20020116, end: 20020116
  3. OMNISCAN [Suspect]
     Indication: RENAL CELL CARCINOMA
     Route: 042
     Dates: start: 20020805, end: 20020805
  4. OMNISCAN [Suspect]
     Indication: NEPHRECTOMY
     Route: 042
     Dates: start: 20030117, end: 20030117
  5. OMNISCAN [Suspect]
     Indication: CONGENITAL CYSTIC KIDNEY DISEASE
     Route: 042
     Dates: start: 20030728, end: 20030728
  6. OMNISCAN [Suspect]
     Indication: HEADACHE
     Route: 042
     Dates: start: 20040719, end: 20040719
  7. OMNISCAN [Suspect]
     Indication: RENAL TRANSPLANT
     Route: 042
     Dates: start: 20041220, end: 20041220
  8. OMNISCAN [Suspect]
     Indication: DIZZINESS
     Route: 042
     Dates: start: 20050803, end: 20050803
  9. OMNISCAN [Suspect]
     Route: 042
     Dates: start: 20060411, end: 20060411

REACTIONS (1)
  - Nephrogenic systemic fibrosis [Not Recovered/Not Resolved]
